FAERS Safety Report 12134568 (Version 4)
Quarter: 2016Q2

REPORT INFORMATION
  Report Type: Report from Study
  Country: US (occurrence: US)
  Receive Date: 20160301
  Receipt Date: 20160609
  Transmission Date: 20160815
  Serious: Yes (Hospitalization, Other)
  Sender: FDA-Public Use
  Company Number: US-GILEAD-2016-0200749

PATIENT
  Age: 77 Year
  Sex: Female

DRUGS (1)
  1. RANOLAZINE [Suspect]
     Active Substance: RANOLAZINE
     Indication: ANGINA PECTORIS
     Dosage: 500 MG, UNK
     Route: 048

REACTIONS (14)
  - Angina pectoris [Unknown]
  - Atrial fibrillation [Unknown]
  - Arthritis [Unknown]
  - Bone disorder [Unknown]
  - Intentional product use issue [Unknown]
  - Fall [Unknown]
  - Occipital neuralgia [Unknown]
  - Oedema [Unknown]
  - Back pain [Unknown]
  - Back injury [Unknown]
  - Headache [Unknown]
  - Face injury [Unknown]
  - Head injury [Unknown]
  - Malaise [Unknown]
